FAERS Safety Report 6156617-X (Version None)
Quarter: 2009Q2

REPORT INFORMATION
  Report Type: 
  Country: None (occurrence: None)
  Receive Date: 20090413
  Receipt Date: 20081211
  Transmission Date: 20091009
  Serious: Yes (Other)
  Sender: FDA-Public Use
  Company Number: OPER20080202

PATIENT
  Age: 30 Year
  Sex: Male
  Weight: 77.1115 kg

DRUGS (2)
  1. OPANA ER [Suspect]
     Indication: BACK PAIN
     Dosage: 5 MG, 1 TABLET BID, PER ORAL
     Route: 048
  2. VICODIN [Concomitant]

REACTIONS (1)
  - DRUG DEPENDENCE [None]
